FAERS Safety Report 8448402-0 (Version None)
Quarter: 2012Q2

REPORT INFORMATION
  Report Type: 
  Country: None (occurrence: None)
  Receive Date: 20120619
  Receipt Date: 20120608
  Transmission Date: 20120825
  Serious: Yes (Other)
  Sender: FDA-Public Use
  Company Number: US-ROCHE-1013817

PATIENT
  Sex: Female

DRUGS (5)
  1. PEGASYS [Suspect]
     Route: 058
     Dates: start: 20110914, end: 20120606
  2. RIBAVIRIN [Suspect]
     Indication: HEPATITIS C
     Route: 048
     Dates: start: 20110713
  3. CITALOPRAM [Concomitant]
  4. RIBAVIRIN [Suspect]
     Route: 048
     Dates: start: 20120504
  5. PEGASYS [Suspect]
     Indication: HEPATITIS C
     Route: 058
     Dates: start: 20110713

REACTIONS (15)
  - POLYMENORRHOEA [None]
  - VOMITING [None]
  - CYST [None]
  - PLATELET COUNT DECREASED [None]
  - NAUSEA [None]
  - VISUAL ACUITY REDUCED [None]
  - WEIGHT DECREASED [None]
  - DECREASED APPETITE [None]
  - MENSTRUATION IRREGULAR [None]
  - DENTAL CARIES [None]
  - PHOTOPSIA [None]
  - BLOOD POTASSIUM DECREASED [None]
  - VISUAL IMPAIRMENT [None]
  - GASTRIC HAEMORRHAGE [None]
  - HYPOMENORRHOEA [None]
